FAERS Safety Report 8094726-9 (Version None)
Quarter: 2012Q1

REPORT INFORMATION
  Report Type: 
  Country: None (occurrence: None)
  Receive Date: 20120129
  Receipt Date: 20111220
  Transmission Date: 20120608
  Serious: No
  Sender: FDA-Public Use
  Company Number: US-ABBOTT-11P-163-0885315-00

PATIENT
  Age: 28 Year
  Sex: Male

DRUGS (5)
  1. INDOMETHACIN [Concomitant]
     Indication: PAIN
  2. HYDROCORTISONE [Concomitant]
     Indication: PRODUCT USED FOR UNKNOWN INDICATION
  3. HUMIRA [Suspect]
     Indication: PSORIATIC ARTHROPATHY
     Dates: start: 20110924, end: 20111208
  4. HUMIRA [Suspect]
     Dates: start: 20111208
  5. OXYCODONE HCL [Concomitant]
     Indication: PAIN

REACTIONS (2)
  - DRUG EFFECT DECREASED [None]
  - BLOOD PRESSURE INCREASED [None]
